FAERS Safety Report 22162007 (Version 2)
Quarter: 2023Q2

REPORT INFORMATION
  Report Type: Report from Study
  Country: GB (occurrence: GB)
  Receive Date: 20230331
  Receipt Date: 20230410
  Transmission Date: 20230722
  Serious: Yes (Other)
  Sender: FDA-Public Use
  Company Number: GB-SAMSUNG BIOEPIS-SB-2022-26996

PATIENT
  Age: 57 Year
  Sex: Male

DRUGS (5)
  1. METHOTREXATE SODIUM [Suspect]
     Active Substance: METHOTREXATE SODIUM
     Dosage: UNK
     Route: 065
  2. AMITRIPTYLINE [Suspect]
     Active Substance: AMITRIPTYLINE
     Indication: Poor quality sleep
     Dosage: UNK
     Route: 065
  3. IMRALDI [Suspect]
     Active Substance: ADALIMUMAB
     Indication: Rheumatoid arthritis
     Dosage: 40 MG/0.8 ML, EVERY 2 WEEKS
     Route: 058
     Dates: start: 20220921
  4. SARS-COV-2 VACCINE [Concomitant]
     Indication: COVID-19 immunisation
     Dosage: UNK
     Route: 065
  5. INFLUENZA VIRUS VACCINE [Concomitant]
     Active Substance: INFLUENZA VIRUS VACCINE
     Dosage: UNK

REACTIONS (30)
  - Oral infection [Recovered/Resolved]
  - Injection site bruising [Unknown]
  - Injection site pain [Not Recovered/Not Resolved]
  - Injection site discolouration [Not Recovered/Not Resolved]
  - Type 2 diabetes mellitus [Unknown]
  - Hiatus hernia [Unknown]
  - Osteoarthritis [Unknown]
  - Spondylitis [Unknown]
  - Pain in extremity [Not Recovered/Not Resolved]
  - Gait disturbance [Unknown]
  - Poor quality sleep [Not Recovered/Not Resolved]
  - Fatigue [Unknown]
  - Hypersomnia [Unknown]
  - Night sweats [Unknown]
  - Food intolerance [Unknown]
  - Blood glucose decreased [Unknown]
  - Ill-defined disorder [Unknown]
  - Peripheral vascular disorder [Unknown]
  - Exercise lack of [Unknown]
  - Walking aid user [Unknown]
  - Stress [Not Recovered/Not Resolved]
  - Arthralgia [Not Recovered/Not Resolved]
  - Abdominal discomfort [Unknown]
  - Impaired work ability [Unknown]
  - Drug ineffective [Unknown]
  - Weight loss diet [Unknown]
  - Loss of personal independence in daily activities [Unknown]
  - Affective disorder [Unknown]
  - Cardiovascular disorder [Unknown]
  - Pain [Not Recovered/Not Resolved]
